FAERS Safety Report 24634491 (Version 1)
Quarter: 2024Q4

REPORT INFORMATION
  Report Type: Spontaneous
  Country: US (occurrence: US)
  Receive Date: 20241119
  Receipt Date: 20241119
  Transmission Date: 20250115
  Serious: No
  Sender: BIOVITRUM
  Company Number: US-BIOVITRUM-2024-US-014606

PATIENT
  Age: 3 Year
  Sex: Female

DRUGS (1)
  1. ANAKINRA [Suspect]
     Active Substance: ANAKINRA
     Indication: Yao syndrome

REACTIONS (3)
  - Injection site pain [Unknown]
  - Drug intolerance [Unknown]
  - Off label use [Unknown]
